FAERS Safety Report 15091213 (Version 1)
Quarter: 2018Q2

REPORT INFORMATION
  Report Type: Spontaneous
  Country: US (occurrence: US)
  Receive Date: 20180629
  Receipt Date: 20180629
  Transmission Date: 20180711
  Serious: No
  Sender: FDA-Public Use
  Company Number: US-AMGEN-USASP2015060097

PATIENT
  Age: 78 Year
  Sex: Female

DRUGS (2)
  1. LEVAQUIN [Concomitant]
     Active Substance: LEVOFLOXACIN
     Dosage: 500 MG, QD
  2. PROLIA [Suspect]
     Active Substance: DENOSUMAB
     Indication: PRODUCT USED FOR UNKNOWN INDICATION
     Dosage: UNK
     Route: 065
     Dates: start: 20150414

REACTIONS (7)
  - Vitamin D deficiency [Unknown]
  - Gastritis [Unknown]
  - Feeling abnormal [Unknown]
  - Bronchitis [Unknown]
  - Nausea [Unknown]
  - Weight decreased [Unknown]
  - Vomiting [Unknown]
